FAERS Safety Report 17744835 (Version 1)
Quarter: 2020Q2

REPORT INFORMATION
  Report Type: Spontaneous
  Country: US (occurrence: US)
  Receive Date: 20200504
  Receipt Date: 20200504
  Transmission Date: 20200714
  Serious: Yes (Other)
  Sender: FDA-Public Use
  Company Number: None

PATIENT
  Age: 32 Year
  Sex: Male
  Weight: 93.6 kg

DRUGS (8)
  1. SLEEP AID [Concomitant]
  2. RHODIOLA ROOT [Suspect]
     Active Substance: HERBALS
     Indication: DEPRESSION
     Dosage: ?          QUANTITY:25 CAPSULE(S);?
     Route: 048
  3. PROZAC [Suspect]
     Active Substance: FLUOXETINE HYDROCHLORIDE
  4. BLACK SEED OIL [Concomitant]
  5. ALOE VERA [Concomitant]
     Active Substance: ALOE VERA LEAF
  6. INVEGA SUSTENNA [Suspect]
     Active Substance: PALIPERIDONE PALMITATE
  7. ULTRA OMEGA 3-6-9 [Concomitant]
  8. ROSEMARY [Concomitant]
     Active Substance: ROSEMARY

REACTIONS (2)
  - Decreased interest [None]
  - Drug interaction [None]

NARRATIVE: CASE EVENT DATE: 20170802
